FAERS Safety Report 16573986 (Version 4)
Quarter: 2021Q2

REPORT INFORMATION
  Report Type: Spontaneous
  Country: US (occurrence: US)
  Receive Date: 20190715
  Receipt Date: 20210412
  Transmission Date: 20210716
  Serious: Yes (Other)
  Sender: FDA-Public Use
  Company Number: US-BIOCODEX SA-201900699

PATIENT

DRUGS (6)
  1. ONFI [Concomitant]
     Active Substance: CLOBAZAM
     Indication: SEVERE MYOCLONIC EPILEPSY OF INFANCY
  2. LEVOCARNITINE. [Concomitant]
     Active Substance: LEVOCARNITINE
  3. KEPPRA [Concomitant]
     Active Substance: LEVETIRACETAM
  4. DIACOMIT [Suspect]
     Active Substance: STIRIPENTOL
     Dosage: 250MG TWICE A DAY
     Route: 048
  5. SELENIUM [Concomitant]
     Active Substance: SELENIUM
  6. DIACOMIT [Suspect]
     Active Substance: STIRIPENTOL
     Indication: EPILEPSY
     Dosage: ONE HALF SACHET (125MG) EVERY MORNING AND 1 SACHET (250MG) EVERY EVENING
     Route: 048
     Dates: start: 20190614

REACTIONS (1)
  - Seizure [Unknown]
